FAERS Safety Report 6374049-6 (Version None)
Quarter: 2009Q3

REPORT INFORMATION
  Report Type: 
  Country: None (occurrence: None)
  Receive Date: 20090924
  Receipt Date: 20090714
  Transmission Date: 20100115
  Serious: Yes (Other)
  Sender: FDA-Public Use
  Company Number: US-ASTRAZENECA-2009UW19724

PATIENT
  Age: 48 Year
  Sex: Female
  Weight: 136.1 kg

DRUGS (3)
  1. SEROQUEL [Suspect]
     Indication: SCHIZOPHRENIA
     Dosage: 50-75 MG FOR 4-5 YEARS
     Route: 048
     Dates: start: 20050101
  2. SEROQUEL [Suspect]
     Indication: BIPOLAR DISORDER
     Dosage: 50-75 MG FOR 4-5 YEARS
     Route: 048
     Dates: start: 20050101
  3. ABILIFY [Concomitant]

REACTIONS (1)
  - WEIGHT INCREASED [None]
